FAERS Safety Report 12242142 (Version 1)
Quarter: 2016Q2

REPORT INFORMATION
  Report Type: Spontaneous
  Country: JP (occurrence: JP)
  Receive Date: 20160406
  Receipt Date: 20160406
  Transmission Date: 20160815
  Serious: Yes (Death)
  Sender: FDA-Public Use
  Company Number: JP-PFIZER INC-2016188841

PATIENT
  Age: 80 Year
  Sex: Male
  Weight: 51.9 kg

DRUGS (3)
  1. ANAEMETRO [Suspect]
     Active Substance: METRONIDAZOLE
     Dosage: 500 MG, 4X/DAY
     Route: 041
     Dates: start: 20151118, end: 20151121
  2. ZOSYN [Concomitant]
     Active Substance: PIPERACILLIN SODIUM\TAZOBACTAM SODIUM
     Dosage: UNK
     Dates: start: 20151115
  3. ANAEMETRO [Suspect]
     Active Substance: METRONIDAZOLE
     Indication: ENTERITIS INFECTIOUS
     Dosage: 500 MG, 1X/DAY
     Route: 041
     Dates: start: 20151117, end: 20151117

REACTIONS (2)
  - Condition aggravated [Fatal]
  - Cardiac failure [Fatal]
